FAERS Safety Report 4972292-1 (Version None)
Quarter: 2006Q2

REPORT INFORMATION
  Report Type: 
  Country: None (occurrence: None)
  Receive Date: 20060413
  Receipt Date: 20051128
  Transmission Date: 20061013
  Serious: Yes (Hospitalization)
  Sender: FDA-Public Use
  Company Number: CH-ABBOTT-05P-151-0318037-00

PATIENT
  Sex: Male
  Weight: 59.1 kg

DRUGS (18)
  1. RITONAVIR [Suspect]
     Indication: HIV INFECTION
     Route: 048
     Dates: start: 20011001
  2. RITONAVIR [Suspect]
     Dates: start: 20040824
  3. RITONAVIR [Suspect]
     Dates: start: 20050404, end: 20051109
  4. TMC114 [Concomitant]
     Indication: HIV INFECTION
     Route: 065
     Dates: start: 20040824, end: 20050403
  5. TMC114 [Concomitant]
     Dates: start: 20050404, end: 20051109
  6. DIDANOSINE [Concomitant]
     Indication: DRUG USE FOR UNKNOWN INDICATION
     Route: 048
     Dates: start: 20040424
  7. DIDANOSINE [Concomitant]
     Dates: start: 20011001
  8. TENOFOVIR [Concomitant]
     Indication: HIV INFECTION
     Route: 048
     Dates: start: 20050824
  9. LAMIVUDINE [Concomitant]
     Indication: HIV INFECTION
     Route: 048
     Dates: start: 20011001
  10. LAMIVUDINE [Concomitant]
     Route: 048
     Dates: start: 20050910
  11. PRAVASTATIN [Concomitant]
     Indication: HYPERLIPIDAEMIA
     Route: 048
  12. BACTRIM [Concomitant]
     Indication: ANTIBIOTIC PROPHYLAXIS
     Route: 048
  13. SPIRONOLACTONE [Concomitant]
     Indication: DRUG USE FOR UNKNOWN INDICATION
  14. TORSEMIDE [Concomitant]
     Indication: DRUG USE FOR UNKNOWN INDICATION
  15. ESOMEPRAZOLE [Concomitant]
     Indication: DRUG USE FOR UNKNOWN INDICATION
  16. PROPRANOLOL HYDROCHLORIDE [Concomitant]
     Indication: DRUG USE FOR UNKNOWN INDICATION
  17. LAMIVUDINE [Concomitant]
  18. FUZEON [Concomitant]
     Indication: HIV INFECTION
     Route: 058

REACTIONS (20)
  - ANOREXIA [None]
  - ASCITES [None]
  - BILE DUCT OBSTRUCTION [None]
  - BLADDER PAIN [None]
  - DEAFNESS UNILATERAL [None]
  - DRUG EFFECT DECREASED [None]
  - GALLBLADDER DISORDER [None]
  - HAEMANGIOMA [None]
  - HEPATIC CIRRHOSIS [None]
  - HEPATIC FAILURE [None]
  - HEPATIC INFECTION [None]
  - HEPATIC NECROSIS [None]
  - HEPATIC STEATOSIS [None]
  - HEPATOCELLULAR DAMAGE [None]
  - KIDNEY SMALL [None]
  - LIVER DISORDER [None]
  - PAIN IN EXTREMITY [None]
  - PLEURAL EFFUSION [None]
  - PORTAL HYPERTENSION [None]
  - WEIGHT DECREASED [None]
